FAERS Safety Report 4492034-6 (Version None)
Quarter: 2004Q4

REPORT INFORMATION
  Report Type: 
  Country: None (occurrence: None)
  Receive Date: 20041029
  Receipt Date: 20041018
  Transmission Date: 20050328
  Serious: Yes (Hospitalization)
  Sender: FDA-Public Use
  Company Number: 2004-BP-06693BP

PATIENT
  Age: 62 Year
  Sex: Male

DRUGS (10)
  1. MICARDIS [Suspect]
     Indication: PROPHYLAXIS
     Dates: start: 20020314
  2. RAMIPRIL [Suspect]
     Indication: CEREBROVASCULAR ACCIDENT
     Route: 048
     Dates: start: 20020314
  3. RAMIPRIL [Suspect]
     Indication: PROPHYLAXIS
     Route: 048
     Dates: start: 20020314
  4. DICLOFENAC (DICLOFENAC) [Suspect]
     Dates: end: 20040804
  5. LIPITOR [Concomitant]
  6. OXAZEPAM [Concomitant]
  7. SELOKEN ZOC (METOPROLOL SUCCINATE) [Concomitant]
  8. REMERON [Concomitant]
  9. TRAMAL (TRAMADOL) [Concomitant]
  10. AUGMENTIN '125' [Concomitant]

REACTIONS (3)
  - PNEUMONIA [None]
  - PULMONARY EMBOLISM [None]
  - RENAL FAILURE [None]
